FAERS Safety Report 19660109 (Version 1)
Quarter: 2021Q3

REPORT INFORMATION
  Report Type: Spontaneous
  Country: US (occurrence: US)
  Receive Date: 20210804
  Receipt Date: 20210804
  Transmission Date: 20211014
  Serious: No
  Sender: FDA-Public Use
  Company Number: None

PATIENT
  Age: 32 Year
  Sex: Female

DRUGS (2)
  1. ZOSYN [Suspect]
     Active Substance: PIPERACILLIN SODIUM\TAZOBACTAM SODIUM
     Indication: URINARY TRACT INFECTION
     Dosage: ?          OTHER FREQUENCY:Q6H;?
     Route: 042
     Dates: start: 20210803
  2. ZOSYN [Suspect]
     Active Substance: PIPERACILLIN SODIUM\TAZOBACTAM SODIUM
     Indication: CYSTITIS
     Dosage: ?          OTHER FREQUENCY:Q6H;?
     Route: 042
     Dates: start: 20210803

REACTIONS (1)
  - Pruritus [None]

NARRATIVE: CASE EVENT DATE: 20210803
